FAERS Safety Report 10364681 (Version 2)
Quarter: 2014Q3

REPORT INFORMATION
  Report Type: Spontaneous
  Country: TW (occurrence: TW)
  Receive Date: 20140806
  Receipt Date: 20140813
  Transmission Date: 20150326
  Serious: Yes (Death, Other)
  Sender: FDA-Public Use
  Company Number: TW-CELGENEUS-153-20785-14080020

PATIENT

DRUGS (8)
  1. VINCRISTINE [Concomitant]
     Active Substance: VINCRISTINE
     Indication: PLASMA CELL MYELOMA
     Route: 065
  2. DOXORUBICIN [Concomitant]
     Active Substance: DOXORUBICIN
     Indication: PLASMA CELL MYELOMA
     Route: 065
  3. THALIDOMIDE [Suspect]
     Active Substance: THALIDOMIDE
     Indication: PLASMA CELL MYELOMA
     Route: 048
  4. MELPHALAN [Concomitant]
     Active Substance: MELPHALAN
     Indication: PLASMA CELL MYELOMA
     Route: 065
  5. PREDNISOLONE. [Concomitant]
     Active Substance: PREDNISOLONE
     Indication: PLASMA CELL MYELOMA
     Route: 065
  6. BORTEZOMIB [Concomitant]
     Active Substance: BORTEZOMIB
     Indication: PLASMA CELL MYELOMA
     Route: 065
  7. REVLIMID [Suspect]
     Active Substance: LENALIDOMIDE
     Indication: PLASMA CELL MYELOMA
     Route: 048
  8. DEXAMETHASONE. [Concomitant]
     Active Substance: DEXAMETHASONE
     Indication: PLASMA CELL MYELOMA
     Route: 065

REACTIONS (18)
  - Cytomegalovirus infection [Fatal]
  - Sedation [Unknown]
  - Somnolence [Unknown]
  - Urinary tract infection [Fatal]
  - Osteonecrosis of jaw [Unknown]
  - Gastrointestinal disorder [Unknown]
  - Venous thrombosis [Unknown]
  - Pancytopenia [Unknown]
  - Plasma cell myeloma [Fatal]
  - Tuberculosis [Unknown]
  - Renal failure acute [Unknown]
  - Pneumocystis jirovecii infection [Unknown]
  - Neuropathy peripheral [Unknown]
  - Bacteraemia [Fatal]
  - Pneumonia bacterial [Fatal]
  - Candida infection [Unknown]
  - Fatigue [Unknown]
  - Rash [Unknown]
